FAERS Safety Report 8782431 (Version 2)
Quarter: 2014Q3

REPORT INFORMATION
  Report Type: Spontaneous
  Country: US (occurrence: US)
  Receive Date: 20120913
  Receipt Date: 20140801
  Transmission Date: 20150326
  Serious: Yes (Other)
  Sender: FDA-Public Use
  Company Number: US-JNJCP-30000127898

PATIENT
  Age: 80 Year
  Sex: Female
  Weight: 60 kg

DRUGS (3)
  1. NEUTROGENA ULTRA SHEER DRY TOUCH SPF55 [Suspect]
     Active Substance: AVOBENZONE\HOMOSALATE\OCTISALATE\OCTOCRYLENE\OXYBENZONE
     Indication: PROPHYLAXIS
     Dosage: IN AN ENOUGH AMOUNT TO COVER FACE AND NECK, ONCE A DAY
     Route: 061
     Dates: end: 20120829
  2. LEVOTHYROXINE [Concomitant]
     Active Substance: LEVOTHYROXINE
     Indication: THYROID DISORDER
     Dosage: ONCE A DAY
  3. AMLODIPINE [Concomitant]
     Active Substance: AMLODIPINE BESYLATE
     Indication: HYPERTENSION
     Dosage: ONCE A DAY

REACTIONS (3)
  - Product quality issue [Unknown]
  - Product expiration date issue [Unknown]
  - Skin cancer [Recovered/Resolved]
